FAERS Safety Report 5800229-1 (Version None)
Quarter: 2008Q3

REPORT INFORMATION
  Report Type: 
  Country: None (occurrence: None)
  Receive Date: 20080702
  Receipt Date: 20080702
  Transmission Date: 20090109
  Serious: Yes (Life-Threatening, Hospitalization, Other)
  Sender: FDA-Public Use
  Company Number: None

PATIENT
  Age: 56 Year
  Sex: Female
  Weight: 76.6579 kg

DRUGS (2)
  1. DIGITOX .125 BERTEK [Suspect]
     Indication: CARDIOMYOPATHY
     Dosage: 125 1XADAY PO
     Route: 048
     Dates: start: 20080101, end: 20080419
  2. DIGITOX .125 BERTEK [Suspect]
     Indication: HEART RATE IRREGULAR
     Dosage: 125 1XADAY PO
     Route: 048
     Dates: start: 20080101, end: 20080419

REACTIONS (11)
  - ACTIVITIES OF DAILY LIVING IMPAIRED [None]
  - CHEST PAIN [None]
  - FATIGUE [None]
  - FEAR OF DEATH [None]
  - HEADACHE [None]
  - HEART RATE INCREASED [None]
  - IMPAIRED DRIVING ABILITY [None]
  - PAIN IN EXTREMITY [None]
  - POOR QUALITY SLEEP [None]
  - SLEEP DISORDER [None]
  - VISUAL IMPAIRMENT [None]
